FAERS Safety Report 11216629 (Version 1)
Quarter: 2015Q2

REPORT INFORMATION
  Report Type: Spontaneous
  Country: US (occurrence: None)
  Receive Date: 20150623
  Receipt Date: 20150623
  Transmission Date: 20150821
  Serious: No
  Sender: FDA-Public Use
  Company Number: None

PATIENT
  Age: 62 Year
  Sex: Female

DRUGS (9)
  1. BIOTIN [Concomitant]
     Active Substance: BIOTIN
  2. VITAMIN-D3 [Concomitant]
  3. CALCIUM [Concomitant]
     Active Substance: CALCIUM
  4. GLUCOSAMINW CHRONDROITIN WITH MSM [Concomitant]
  5. ASPIRIN. [Concomitant]
     Active Substance: ASPIRIN
  6. PREPOPIK [Suspect]
     Active Substance: ANHYDROUS CITRIC ACID\MAGNESIUM OXIDE\SODIUM PICOSULFATE
     Indication: BOWEL PREPARATION
     Dosage: 2 PACKETS?5P.M. AND 5 A.M.?TAKEN BY MOUTH
     Route: 048
     Dates: start: 20150608, end: 20150609
  7. WELBUTRIN XL [Concomitant]
  8. ADDERALL XR [Concomitant]
     Active Substance: AMPHETAMINE ASPARTATE\AMPHETAMINE SULFATE\DEXTROAMPHETAMINE SACCHARATE\DEXTROAMPHETAMINE SULFATE
  9. ESCITALOPRAM [Concomitant]
     Active Substance: ESCITALOPRAM OXALATE

REACTIONS (5)
  - Lethargy [None]
  - Drug effect incomplete [None]
  - Nausea [None]
  - Abdominal distension [None]
  - Product physical consistency issue [None]

NARRATIVE: CASE EVENT DATE: 20150609
